FAERS Safety Report 7925174-7 (Version None)
Quarter: 2011Q4

REPORT INFORMATION
  Report Type: 
  Country: None (occurrence: None)
  Receive Date: 20111118
  Receipt Date: 20110401
  Transmission Date: 20120403
  Serious: No
  Sender: FDA-Public Use
  Company Number: US-AMGEN-USASP2011017518

PATIENT
  Age: 53 Year
  Sex: Female

DRUGS (2)
  1. ENBREL [Suspect]
     Indication: PSORIATIC ARTHROPATHY
     Dosage: 25 MG, 2 TIMES/WK
     Dates: start: 20030501
  2. NASONEX [Concomitant]

REACTIONS (10)
  - INFLUENZA [None]
  - EAR PAIN [None]
  - INJECTION SITE HAEMATOMA [None]
  - OSTEOPOROSIS [None]
  - HEADACHE [None]
  - NASOPHARYNGITIS [None]
  - SEASONAL ALLERGY [None]
  - BONE LOSS [None]
  - HOT FLUSH [None]
  - EAR DISCOMFORT [None]
